FAERS Safety Report 9144627 (Version 2)
Quarter: 2013Q2

REPORT INFORMATION
  Report Type: Spontaneous
  Country: GB (occurrence: GB)
  Receive Date: 20130306
  Receipt Date: 20130523
  Transmission Date: 20140414
  Serious: Yes (Other)
  Sender: FDA-Public Use
  Company Number: GB-ROCHE-1197590

PATIENT
  Age: 36 Year
  Sex: Male

DRUGS (4)
  1. XOLAIR [Suspect]
     Indication: ASTHMA
     Dosage: 6 SYRINGES OF 150 MG OVER THE FIRST 12 WEEKS
     Route: 058
     Dates: start: 20120813
  2. SYMBICORT [Concomitant]
  3. SALBUTAMOL [Concomitant]
  4. CETIRIZINE HYDROCHLORIDE [Concomitant]
     Route: 065
     Dates: start: 201204

REACTIONS (2)
  - Asthma [Recovering/Resolving]
  - Therapeutic response decreased [Recovering/Resolving]
